FAERS Safety Report 6155724-5 (Version None)
Quarter: 2009Q2

REPORT INFORMATION
  Report Type: 
  Country: None (occurrence: None)
  Receive Date: 20090415
  Receipt Date: 20090407
  Transmission Date: 20091009
  Serious: Yes (Life-Threatening, Hospitalization)
  Sender: FDA-Public Use
  Company Number: B0568885A

PATIENT
  Age: 25 Year
  Sex: Male

DRUGS (4)
  1. LAMICTAL [Suspect]
     Indication: EPILEPSY
     Route: 048
     Dates: start: 20090101
  2. RIFATER [Suspect]
     Indication: PULMONARY TUBERCULOSIS
     Route: 048
     Dates: start: 20090124
  3. MYAMBUTOL [Suspect]
     Indication: PULMONARY TUBERCULOSIS
     Route: 048
     Dates: start: 20090124
  4. BACTRIM DS [Concomitant]
     Route: 048

REACTIONS (7)
  - ANOREXIA [None]
  - BLOOD AMYLASE INCREASED [None]
  - CONVULSION [None]
  - FATIGUE [None]
  - HEPATITIS FULMINANT [None]
  - HYPOTENSION [None]
  - PSYCHOMOTOR RETARDATION [None]
